FAERS Safety Report 7087982-7 (Version None)
Quarter: 2010Q4

REPORT INFORMATION
  Report Type: 
  Country: None (occurrence: None)
  Receive Date: 20101108
  Receipt Date: 20101026
  Transmission Date: 20110411
  Serious: Yes (Death)
  Sender: FDA-Public Use
  Company Number: IN-JNJFOC-20101101265

PATIENT
  Age: 48 Year
  Sex: Male

DRUGS (2)
  1. KETOCONAZOLE [Suspect]
     Indication: CHROMOBLASTOMYCOSIS
     Route: 065
  2. AMPHOTERICIN B [Suspect]
     Indication: CHROMOBLASTOMYCOSIS
     Route: 042

REACTIONS (2)
  - DISEASE PROGRESSION [None]
  - OFF LABEL USE [None]
